FAERS Safety Report 4287031-X (Version None)
Quarter: 2004Q1

REPORT INFORMATION
  Report Type: 
  Country: None (occurrence: None)
  Receive Date: 20040205
  Receipt Date: 20040108
  Transmission Date: 20041129
  Serious: Yes (Other)
  Sender: FDA-Public Use
  Company Number: A03200400061

PATIENT
  Age: 51 Year
  Sex: Male
  Weight: 79.3795 kg

DRUGS (6)
  1. PLAVIX [Suspect]
     Indication: STENT PLACEMENT
     Dosage: 75 MG QD - ORAL
     Route: 048
     Dates: start: 20040102
  2. FUROSEMIDE [Concomitant]
  3. ENALAPRIL MALEATE [Concomitant]
  4. ACETYLSALICYLIC ACID SRT [Concomitant]
  5. EZETIMIBE [Concomitant]
  6. LORAZEPAM [Concomitant]

REACTIONS (4)
  - CHEST PAIN [None]
  - DROOLING [None]
  - FACIAL PAIN [None]
  - FACIAL PALSY [None]
